FAERS Safety Report 15061700 (Version 9)
Quarter: 2020Q4

REPORT INFORMATION
  Report Type: Report from Study
  Country: FR (occurrence: FR)
  Receive Date: 20180625
  Receipt Date: 20201014
  Transmission Date: 20210113
  Serious: Yes (Death, Hospitalization, Other)
  Sender: FDA-Public Use
  Company Number: FR-BRISTOL-MYERS SQUIBB COMPANY-BMS-2018-057277

PATIENT
  Age: 91 Year
  Sex: Male
  Weight: 85 kg

DRUGS (15)
  1. ELIQUIS [Suspect]
     Active Substance: APIXABAN
     Dosage: 10 MG, UNK
     Route: 048
     Dates: start: 201803, end: 20180508
  2. LOVENOX [Concomitant]
     Active Substance: ENOXAPARIN SODIUM
     Dosage: 4000 IU, DAILY DOSAGE
     Route: 058
     Dates: start: 20180113, end: 2018
  3. LASILIX [FUROSEMIDE] [Concomitant]
     Active Substance: FUROSEMIDE
     Indication: PRODUCT USED FOR UNKNOWN INDICATION
     Dosage: 40 MG, QD
     Route: 048
     Dates: end: 20180508
  4. VALSARTAN. [Concomitant]
     Active Substance: VALSARTAN
     Indication: HYPERTENSION
     Dosage: 160 MG, QD
     Route: 048
     Dates: end: 20180508
  5. LERCANIDIPINE [Concomitant]
     Active Substance: LERCANIDIPINE
     Indication: HYPERTENSION
     Dosage: 10 MG, QD
     Route: 048
     Dates: end: 20180508
  6. BISOPROLOL [Concomitant]
     Active Substance: BISOPROLOL
     Indication: THROMBOSIS PROPHYLAXIS
     Dosage: UNK
     Route: 048
     Dates: end: 20180508
  7. KARDEGIC [Suspect]
     Active Substance: ASPIRIN DL-LYSINE
     Indication: PRODUCT USED FOR UNKNOWN INDICATION
     Dosage: 75 MG, UNK
     Route: 048
     Dates: start: 20170726, end: 2017
  8. LOVENOX [Concomitant]
     Active Substance: ENOXAPARIN SODIUM
     Indication: ANTICOAGULANT THERAPY
     Dosage: 4000 IU, DAILY DOSAGE
     Route: 058
     Dates: start: 20180115, end: 2018
  9. SILODOSINE [Concomitant]
     Active Substance: SILODOSIN
     Indication: BENIGN PROSTATIC HYPERPLASIA
     Dosage: 4 MG, QD
     Route: 048
     Dates: end: 20180508
  10. ZOPICLONE [Concomitant]
     Active Substance: ZOPICLONE
     Indication: PRODUCT USED FOR UNKNOWN INDICATION
     Dosage: 3.75 MG, QD
     Route: 048
     Dates: end: 20180508
  11. PREVISCAN [FLUINDIONE] [Suspect]
     Active Substance: FLUINDIONE
     Indication: PRODUCT USED FOR UNKNOWN INDICATION
     Dosage: 10 MG, QD
     Route: 048
     Dates: start: 2012, end: 20180112
  12. KARDEGIC [Suspect]
     Active Substance: ASPIRIN DL-LYSINE
     Dosage: 160 MG, QD
     Route: 048
     Dates: start: 20180115, end: 201803
  13. APIXABAN [Suspect]
     Active Substance: APIXABAN
     Indication: PRODUCT USED FOR UNKNOWN INDICATION
     Dosage: 10 MG, DAILY DOSAGE
     Route: 048
     Dates: start: 2018
  14. DIFFU K [Concomitant]
     Active Substance: POTASSIUM CHLORIDE
     Indication: MINERAL SUPPLEMENTATION
     Dosage: 1200 MG, QD
     Route: 048
     Dates: end: 20180508
  15. ELIQUIS [Suspect]
     Active Substance: APIXABAN
     Indication: PRODUCT USED FOR UNKNOWN INDICATION
     Dosage: 5 MG, UNK
     Route: 048
     Dates: start: 20180307, end: 20180322

REACTIONS (9)
  - Meningorrhagia [Fatal]
  - Ruptured cerebral aneurysm [Unknown]
  - Device occlusion [Unknown]
  - Haemorrhagic stroke [Recovered/Resolved]
  - Enterococcal infection [Not Recovered/Not Resolved]
  - Endocarditis [Fatal]
  - Enterobacter infection [Not Recovered/Not Resolved]
  - Infective aneurysm [Unknown]
  - Altered state of consciousness [Unknown]

NARRATIVE: CASE EVENT DATE: 20180112
